FAERS Safety Report 23755266 (Version 1)
Quarter: 2024Q2

REPORT INFORMATION
  Report Type: Spontaneous
  Country: CN (occurrence: None)
  Receive Date: 20240418
  Receipt Date: 20240418
  Transmission Date: 20240716
  Serious: Yes (Other)
  Sender: FDA-Public Use
  Company Number: CN-ROCHE-3544268

PATIENT
  Age: 71 Year
  Sex: Male

DRUGS (9)
  1. AVASTIN [Suspect]
     Active Substance: BEVACIZUMAB
     Indication: Adenocarcinoma of colon
     Dosage: LINE ONE THERAPY
     Route: 065
     Dates: start: 202111
  2. AVASTIN [Suspect]
     Active Substance: BEVACIZUMAB
     Dosage: LINE THREE THERAPY
     Route: 065
     Dates: start: 202208
  3. FLUOROURACIL [Concomitant]
     Active Substance: FLUOROURACIL
     Indication: Adenocarcinoma of colon
     Dates: start: 202111
  4. OXALIPLATIN [Concomitant]
     Active Substance: OXALIPLATIN
     Indication: Adenocarcinoma of colon
     Dosage: LINE TWO THERAPY?/NOV/2021
     Dates: start: 201907
  5. LEUCOVORIN CALCIUM [Concomitant]
     Active Substance: LEUCOVORIN CALCIUM
     Indication: Adenocarcinoma of colon
     Dates: start: 202111
  6. IRINOTECAN [Concomitant]
     Active Substance: IRINOTECAN
     Indication: Adenocarcinoma of colon
  7. TIPIRACIL HYDROCHLORIDE\TRIFLURIDINE [Concomitant]
     Active Substance: TIPIRACIL HYDROCHLORIDE\TRIFLURIDINE
     Indication: Adenocarcinoma of colon
     Route: 048
     Dates: start: 202208
  8. TIPIRACIL HYDROCHLORIDE\TRIFLURIDINE [Concomitant]
     Active Substance: TIPIRACIL HYDROCHLORIDE\TRIFLURIDINE
     Dosage: LINE TWO THERAPY
     Route: 048
  9. RALTITREXED [Concomitant]
     Active Substance: RALTITREXED
     Indication: Adenocarcinoma of colon
     Dosage: LINE TWO THERAPY
     Dates: start: 201907

REACTIONS (9)
  - Mouth ulceration [Recovering/Resolving]
  - Platelet count decreased [Recovering/Resolving]
  - Metastases to lung [Unknown]
  - Metastases to liver [Unknown]
  - Pyrexia [Recovering/Resolving]
  - Asthenia [Unknown]
  - Neutrophil count decreased [Unknown]
  - Diarrhoea [Unknown]
  - Hypophagia [Unknown]

NARRATIVE: CASE EVENT DATE: 20220501
